FAERS Safety Report 24690736 (Version 1)
Quarter: 2024Q4

REPORT INFORMATION
  Report Type: Spontaneous
  Country: US (occurrence: US)
  Receive Date: 20241203
  Receipt Date: 20241203
  Transmission Date: 20250114
  Serious: Yes (Death, Life-Threatening, Hospitalization, Other)
  Sender: JUBILANT
  Company Number: US-JUBILANT PHARMA LTD-2024US001690

PATIENT
  Age: 10 Month
  Sex: Male

DRUGS (5)
  1. OLANZAPINE [Suspect]
     Active Substance: OLANZAPINE
     Indication: Delirium
     Dosage: UNK, AS NECESSARY
  2. ACETAMINOPHEN [Concomitant]
     Active Substance: ACETAMINOPHEN
     Indication: Product used for unknown indication
     Dosage: UNK
  3. LORAZEPAM [Concomitant]
     Active Substance: LORAZEPAM
     Indication: Product used for unknown indication
     Dosage: UNK
  4. MORPHINE [Concomitant]
     Active Substance: MORPHINE
     Indication: Product used for unknown indication
     Dosage: UNK
  5. MIDAZOLAM [Concomitant]
     Active Substance: MIDAZOLAM
     Indication: Product used for unknown indication
     Dosage: UNK

REACTIONS (21)
  - Neuroleptic malignant syndrome [Fatal]
  - Agitation [Fatal]
  - Shock [Fatal]
  - Depressed level of consciousness [Fatal]
  - Tachycardia [Fatal]
  - Hyperthermia [Fatal]
  - Muscle rigidity [Fatal]
  - Leukocytosis [Fatal]
  - Acute kidney injury [Fatal]
  - Blood creatine phosphokinase increased [Fatal]
  - Lactic acidosis [Fatal]
  - Hepatic function abnormal [Fatal]
  - Disseminated intravascular coagulation [Fatal]
  - Brain injury [Fatal]
  - Generalised oedema [Fatal]
  - Acute myocardial infarction [Fatal]
  - Brain hypoxia [Fatal]
  - Autonomic nervous system imbalance [Fatal]
  - Multiple organ dysfunction syndrome [Fatal]
  - Multiple organ dysfunction syndrome [Fatal]
  - Cerebral infarction [Fatal]
